FAERS Safety Report 16701982 (Version 1)
Quarter: 2019Q3

REPORT INFORMATION
  Report Type: Spontaneous
  Country: CO (occurrence: CO)
  Receive Date: 20190801
  Receipt Date: 20190801
  Transmission Date: 20191004
  Serious: Yes (Disabling)
  Sender: FDA-Public Use
  Company Number: None

PATIENT
  Sex: Female
  Weight: 83 kg

DRUGS (3)
  1. ADVIL ULTRA [Concomitant]
  2. DESVENLAFAXINA 50 MG [Suspect]
     Active Substance: DESVENLAFAXINE
     Indication: BIPOLAR DISORDER
     Dosage: ?          QUANTITY:1 DF DOSAGE FORM;?
     Route: 048
     Dates: start: 20190305
  3. DESVENLAFAXINE. [Concomitant]
     Active Substance: DESVENLAFAXINE

REACTIONS (10)
  - Insomnia [None]
  - Arthralgia [None]
  - Headache [None]
  - Loss of libido [None]
  - Decreased appetite [None]
  - Confusional state [None]
  - Irritability [None]
  - Depression [None]
  - Fatigue [None]
  - Myalgia [None]
